FAERS Safety Report 10242145 (Version 1)
Quarter: 2014Q2

REPORT INFORMATION
  Report Type: Spontaneous
  Country: IT (occurrence: IT)
  Receive Date: 20140617
  Receipt Date: 20140617
  Transmission Date: 20141212
  Serious: Yes (Hospitalization)
  Sender: FDA-Public Use
  Company Number: IT-BAYER-2014-088270

PATIENT
  Age: 88 Year
  Sex: Female

DRUGS (8)
  1. CARDIOASPIRIN [Suspect]
     Indication: THROMBOSIS PROPHYLAXIS
     Dosage: DAILY DOSE 100 MG
     Route: 048
     Dates: start: 20130101, end: 20140201
  2. CARDIOASPIRIN [Suspect]
     Indication: THROMBOSIS PROPHYLAXIS
     Dosage: UNK
     Route: 048
  3. EFFERALGAN [Suspect]
     Indication: ARTHRALGIA
     Dosage: DAILY DOSE 2 DF
     Route: 048
     Dates: start: 20140130, end: 20140201
  4. LERCANIDIPINE [Concomitant]
     Dosage: DAILY DOSE 1 DF
     Route: 048
  5. PANTOPRAZOLE [Concomitant]
     Dosage: DAILY DOSE 20 MG
     Route: 048
  6. TRITTICO [Concomitant]
     Dosage: DAILY DOSE 1 DF
     Route: 048
  7. TAVOR [LORAZEPAM] [Concomitant]
     Dosage: DAILY DOSE 1 DF
     Route: 048
  8. SEROPRAM [Concomitant]
     Dosage: DAILY DOSE 1 DF
     Route: 048

REACTIONS (4)
  - Abdominal pain upper [Unknown]
  - Haematemesis [Unknown]
  - Oesophagitis [Unknown]
  - Hiatus hernia [Unknown]
